FAERS Safety Report 4982460-0 (Version None)
Quarter: 2006Q2

REPORT INFORMATION
  Report Type: 
  Country: None (occurrence: None)
  Receive Date: 20060425
  Receipt Date: 20060215
  Transmission Date: 20061013
  Serious: Yes (Hospitalization)
  Sender: FDA-Public Use
  Company Number: US-GILEAD-2006-0009243

PATIENT
  Sex: Male
  Weight: 45.627 kg

DRUGS (10)
  1. TRUVADA [Suspect]
     Indication: HIV INFECTION
     Route: 048
     Dates: start: 20060104, end: 20060214
  2. REYATAZ [Suspect]
     Indication: HIV INFECTION
     Route: 048
     Dates: start: 20060104, end: 20060214
  3. NORVIR [Suspect]
     Indication: HIV INFECTION
     Route: 048
     Dates: start: 20060104, end: 20060214
  4. CLINDAMYCIN [Suspect]
     Indication: TOXOPLASMOSIS
     Dates: start: 20060119, end: 20060214
  5. DAPSONE [Concomitant]
     Indication: ANTIBIOTIC PROPHYLAXIS
     Dates: start: 20060119, end: 20060214
  6. LEUCOVORIN [Concomitant]
     Indication: TOXOPLASMOSIS
     Dates: start: 20060119, end: 20060214
  7. PYRIMETHAMINE TAB [Concomitant]
     Indication: TOXOPLASMOSIS
     Dates: start: 20060202, end: 20060214
  8. COMPAZINE [Concomitant]
     Indication: NAUSEA
     Dates: start: 20060203, end: 20060214
  9. COMPAZINE [Concomitant]
     Indication: VOMITING
  10. ZITHROMAX [Concomitant]
     Indication: ANTIBIOTIC PROPHYLAXIS
     Dates: start: 20051209, end: 20060214

REACTIONS (4)
  - DEHYDRATION [None]
  - NAUSEA [None]
  - TOXOPLASMOSIS [None]
  - VOMITING [None]
